FAERS Safety Report 8004068-5 (Version None)
Quarter: 2011Q4

REPORT INFORMATION
  Report Type: 
  Country: None (occurrence: None)
  Receive Date: 20111222
  Receipt Date: 20111216
  Transmission Date: 20120403
  Serious: Yes (Hospitalization)
  Sender: FDA-Public Use
  Company Number: US-ROCHE-1014679

PATIENT
  Age: 52 Year
  Sex: Male
  Weight: 125 kg

DRUGS (9)
  1. CIPROFLOXACIN [Concomitant]
  2. DOCETAXEL [Suspect]
     Indication: METASTATIC NEOPLASM
     Dosage: OVER 1 HR, DAY 1. TOTAL DOSE ADMINISTERED: 175 MG, LAST ADMINISTERED: 25 AUG 2011
     Route: 042
     Dates: start: 20110330
  3. CEPHALOSPORIN (UNK INGREDIENTS) [Concomitant]
  4. HEPARIN [Concomitant]
  5. ACETAMINOPHEN [Concomitant]
  6. PROTONIX [Concomitant]
  7. AVASTIN [Suspect]
     Indication: METASTATIC NEOPLASM
     Dosage: OVER 30-90 MIN, DAY 1.TOTAL DOSE ADMINISTERED :1700MG. LAST ADMINISTERED DATE: 25 AUG 2011
     Route: 042
     Dates: start: 20110330
  8. CISPLATIN [Suspect]
     Indication: METASTATIC NEOPLASM
     Dosage: OVER 1-2 HRS, DAY 1.TOTAL DOSE ADMINISTERED: 175 MG, LAST ADMINISTERED: 25 AUG 2011
     Route: 042
     Dates: start: 20110330
  9. ZOFRAN [Concomitant]

REACTIONS (4)
  - CONDUCTION DISORDER [None]
  - MALAISE [None]
  - ASTHENIA [None]
  - DIZZINESS [None]
